FAERS Safety Report 4282582-6 (Version None)
Quarter: 2004Q1

REPORT INFORMATION
  Report Type: 
  Country: None (occurrence: None)
  Receive Date: 20040130
  Receipt Date: 20020111
  Transmission Date: 20041129
  Serious: No
  Sender: FDA-Public Use
  Company Number: US-BRISTOL-MYERS SQUIBB COMPANY-11664935

PATIENT
  Age: 43 Year
  Sex: Female
  Weight: 52 kg

DRUGS (12)
  1. SERZONE [Suspect]
     Indication: DEPRESSION
     Dosage: TOTAL 12-14 MONTHS;150MG TO 200MG-1/20/99 TO 300MG BID 2/8/99;OFF RX;200MG ON10/4/99
     Route: 048
     Dates: start: 19980901
  2. NAPROXEN SODIUM [Concomitant]
     Dates: start: 19980901
  3. CARISOPRODOL [Concomitant]
     Dates: start: 19980901
  4. CEPHALEXIN [Concomitant]
  5. HYDROCODONE + ACETAMINOPHEN [Concomitant]
  6. DIAZEPAM [Concomitant]
  7. PROMETHAZINE [Concomitant]
  8. AMOXICILLIN [Concomitant]
  9. ALPRAZOLAM [Concomitant]
  10. ACETAMINOPHEN W/ PROPOXYPHENE HCL [Concomitant]
  11. PENICILLIN V POTASSIUM [Concomitant]
  12. ZOVIRAX [Concomitant]

REACTIONS (1)
  - HEPATITIS C [None]
